FAERS Safety Report 8381247-9 (Version None)
Quarter: 2012Q2

REPORT INFORMATION
  Report Type: 
  Country: None (occurrence: None)
  Receive Date: 20120523
  Receipt Date: 20120516
  Transmission Date: 20120825
  Serious: Yes (Other)
  Sender: FDA-Public Use
  Company Number: US-TEVA-339068USA

PATIENT
  Sex: Female

DRUGS (2)
  1. CITALOPRAM HYDROBROMIDE [Concomitant]
  2. CLARAVIS [Suspect]
     Dosage: 50 MILLIGRAM;
     Route: 048
     Dates: start: 20120417

REACTIONS (2)
  - SUICIDE ATTEMPT [None]
  - DEPRESSED MOOD [None]
